FAERS Safety Report 13648990 (Version 3)
Quarter: 2017Q3

REPORT INFORMATION
  Report Type: Spontaneous
  Country: US (occurrence: US)
  Receive Date: 20170613
  Receipt Date: 20170712
  Transmission Date: 20171127
  Serious: No
  Sender: FDA-Public Use
  Company Number: US-ACTELION-A-US2017-155080

PATIENT
  Age: 48 Year
  Sex: Female

DRUGS (3)
  1. VALCHLOR [Suspect]
     Active Substance: MECHLORETHAMINE
     Indication: MYCOSIS FUNGOIDES
     Dosage: UNK, QD
     Route: 061
     Dates: start: 20170520
  2. NYSTATIN. [Concomitant]
     Active Substance: NYSTATIN
  3. PERCOCET [Concomitant]
     Active Substance: ACETAMINOPHEN\OXYCODONE HYDROCHLORIDE

REACTIONS (10)
  - Rash papular [Unknown]
  - Bone pain [Unknown]
  - Nausea [Unknown]
  - Therapy non-responder [Unknown]
  - Secretion discharge [Unknown]
  - Chills [Unknown]
  - Decreased appetite [Unknown]
  - Skin swelling [Unknown]
  - Skin ulcer [Unknown]
  - Lethargy [Unknown]
